FAERS Safety Report 9047327 (Version 1)
Quarter: 2013Q1

REPORT INFORMATION
  Report Type: Spontaneous
  Country: US (occurrence: US)
  Receive Date: 20130131
  Receipt Date: 20130131
  Transmission Date: 20140127
  Serious: No
  Sender: FDA-Public Use
  Company Number: US-ABBOTT-12P-163-0978978-00

PATIENT
  Age: 61 None
  Sex: Female
  Weight: 88.53 kg

DRUGS (3)
  1. HUMIRA [Suspect]
     Indication: PSORIASIS
     Dates: start: 2009, end: 201204
  2. HUMIRA [Suspect]
     Dates: start: 20120915
  3. TOPICAL FOAM [Concomitant]
     Indication: PSORIASIS
     Route: 061

REACTIONS (5)
  - Tooth fracture [Unknown]
  - Psoriasis [Not Recovered/Not Resolved]
  - Pain [Not Recovered/Not Resolved]
  - Insomnia [Not Recovered/Not Resolved]
  - Skin exfoliation [Unknown]
